FAERS Safety Report 6166183-0 (Version None)
Quarter: 2009Q2

REPORT INFORMATION
  Report Type: 
  Country: None (occurrence: None)
  Receive Date: 20090424
  Receipt Date: 20090417
  Transmission Date: 20091009
  Serious: Yes (Hospitalization)
  Sender: FDA-Public Use
  Company Number: US-BIOGENIDEC-2009BI007359

PATIENT
  Age: 43 Year
  Sex: Female

DRUGS (1)
  1. AVONEX [Suspect]
     Indication: MULTIPLE SCLEROSIS
     Route: 030
     Dates: start: 20070911, end: 20090202

REACTIONS (6)
  - BALANCE DISORDER [None]
  - BLINDNESS UNILATERAL [None]
  - DEAFNESS UNILATERAL [None]
  - INFECTION [None]
  - INFLUENZA LIKE ILLNESS [None]
  - PNEUMONIA [None]
